FAERS Safety Report 20596184 (Version 2)
Quarter: 2022Q2

REPORT INFORMATION
  Report Type: Spontaneous
  Country: US (occurrence: US)
  Receive Date: 20220315
  Receipt Date: 20220413
  Transmission Date: 20220721
  Serious: No
  Sender: FDA-Public Use
  Company Number: US-PFIZER INC-202200344601

PATIENT
  Age: 59 Year
  Sex: Female

DRUGS (1)
  1. XELJANZ XR [Suspect]
     Active Substance: TOFACITINIB CITRATE
     Indication: Rheumatoid arthritis
     Dosage: 11 MG, 1X/DAY
     Route: 048
     Dates: start: 202201

REACTIONS (14)
  - Peripheral swelling [Recovering/Resolving]
  - Hypoaesthesia [Recovered/Resolved]
  - Headache [Unknown]
  - Pain [Recovering/Resolving]
  - Fatigue [Unknown]
  - Gait disturbance [Recovering/Resolving]
  - Insomnia [Unknown]
  - Sinus disorder [Not Recovered/Not Resolved]
  - Secretion discharge [Not Recovered/Not Resolved]
  - Productive cough [Not Recovered/Not Resolved]
  - C-reactive protein increased [Unknown]
  - Discouragement [Unknown]
  - Muscle disorder [Unknown]
  - Product dose omission in error [Unknown]

NARRATIVE: CASE EVENT DATE: 20220101
